FAERS Safety Report 8340307-9 (Version None)
Quarter: 2012Q2

REPORT INFORMATION
  Report Type: 
  Country: None (occurrence: None)
  Receive Date: 20120507
  Receipt Date: 20120507
  Transmission Date: 20120825
  Serious: Yes (Hospitalization)
  Sender: FDA-Public Use
  Company Number: None

PATIENT
  Age: 30 Year
  Sex: Female
  Weight: 81.646 kg

DRUGS (1)
  1. CHANTIX [Suspect]

REACTIONS (7)
  - DEPRESSED MOOD [None]
  - SELF INJURIOUS BEHAVIOUR [None]
  - CRYING [None]
  - CONFUSIONAL STATE [None]
  - FEELING ABNORMAL [None]
  - IRRITABILITY [None]
  - DEPRESSION [None]
